FAERS Safety Report 5099970-0 (Version None)
Quarter: 2006Q3

REPORT INFORMATION
  Report Type: 
  Country: None (occurrence: None)
  Receive Date: 20060908
  Receipt Date: 20060217
  Transmission Date: 20061208
  Serious: Yes (Hospitalization)
  Sender: FDA-Public Use
  Company Number: HQWYE927822FEB06

PATIENT
  Sex: Female

DRUGS (5)
  1. ENBREL [Suspect]
     Indication: RHEUMATOID ARTHRITIS
     Route: 058
     Dates: start: 20051124, end: 20060204
  2. ENBREL [Suspect]
     Route: 065
     Dates: start: 20060215
  3. CONIEL [Concomitant]
     Route: 065
  4. GASTER [Concomitant]
     Route: 065
  5. BUCILLAMINE [Concomitant]
     Indication: RHEUMATOID ARTHRITIS
     Route: 048
     Dates: end: 20060217

REACTIONS (1)
  - REFLUX OESOPHAGITIS [None]
